FAERS Safety Report 6062429-8 (Version None)
Quarter: 2009Q1

REPORT INFORMATION
  Report Type: 
  Country: None (occurrence: None)
  Receive Date: 20090203
  Receipt Date: 20080325
  Transmission Date: 20090719
  Serious: Yes (Disabling)
  Sender: FDA-Public Use
  Company Number: BR-BAYER-200813245LA

PATIENT
  Age: 25 Year
  Sex: Female

DRUGS (2)
  1. YASMIN [Suspect]
     Indication: DRUG USE FOR UNKNOWN INDICATION
     Route: 048
     Dates: start: 20050101, end: 20070901
  2. YAZ [Suspect]
     Indication: DRUG USE FOR UNKNOWN INDICATION
     Route: 048
     Dates: start: 20071001

REACTIONS (12)
  - ARTHRALGIA [None]
  - CRYING [None]
  - DEPRESSED MOOD [None]
  - HEADACHE [None]
  - HUNGER [None]
  - IMPAIRED WORK ABILITY [None]
  - NERVOUSNESS [None]
  - PAIN [None]
  - PAIN IN EXTREMITY [None]
  - PHYSICAL DISABILITY [None]
  - PREMENSTRUAL SYNDROME [None]
  - SENSATION OF HEAVINESS [None]
